FAERS Safety Report 9514899 (Version 2)
Quarter: 2014Q1

REPORT INFORMATION
  Report Type: Spontaneous
  Country: US (occurrence: None)
  Receive Date: 20130305
  Receipt Date: 20140306
  Transmission Date: 20141002
  Serious: Yes (Hospitalization, Disabling, Other)
  Sender: FDA-Public Use
  Company Number: 163-21880-12112015

PATIENT
  Age: 81 Year
  Sex: Female

DRUGS (17)
  1. REVLIMID (LENALIDOMIDE) (CAPSULES) [Suspect]
     Indication: PLASMA CELL MYELOMA
     Dosage: 25MG, 21 IN 28D, PO
     Route: 048
     Dates: start: 20121106, end: 20121118
  2. ALLOPURINOL [Concomitant]
  3. AMLODIPINE [Concomitant]
  4. LOMOTIL [Concomitant]
  5. LASIX (FUROSEMIDE) [Concomitant]
  6. PERCOCET (OXYCOCET) [Concomitant]
  7. LISINOPRIL [Concomitant]
  8. METOPROLOL TARTRATE [Concomitant]
  9. SIMVASTATIN [Concomitant]
  10. TIMOLOL [Concomitant]
  11. LORAZEPAM [Concomitant]
  12. ATIVAN (LORAZEPAM) [Concomitant]
  13. DIPHENOXYLATE-ATROPINE (LOMOTIL) [Concomitant]
  14. HYDROCODONE [Concomitant]
  15. PRAVASTATIN [Concomitant]
  16. PRILOSEC (OMEPRAZOLE) [Concomitant]
  17. DECADRON (DEXAMETHASONE) [Suspect]
     Indication: PLASMA CELL MYELOMA
     Dosage: 40MG,  IN 1WK, PO
     Route: 048
     Dates: start: 20121106, end: 20121118

REACTIONS (10)
  - Rash [None]
  - Muscle spasms [None]
  - Pruritus [None]
  - Respiratory failure [None]
  - Pleural effusion [None]
  - Pneumonia [None]
  - Renal failure acute [None]
  - Dyspnoea [None]
  - Oedema peripheral [None]
  - Bone pain [None]
